FAERS Safety Report 15128422 (Version 1)
Quarter: 2018Q3

REPORT INFORMATION
  Report Type: Spontaneous
  Country: US (occurrence: US)
  Receive Date: 20180711
  Receipt Date: 20180711
  Transmission Date: 20181010
  Serious: No
  Sender: FDA-Public Use
  Company Number: US-INGENUS PHARMACEUTICALS NJ, LLC-ING201804-000375

PATIENT
  Sex: Female

DRUGS (1)
  1. CYPROHEPTADINE HYDROCHLORIDE TABLETS USP [Suspect]
     Active Substance: CYPROHEPTADINE HYDROCHLORIDE
     Indication: HYPERSENSITIVITY

REACTIONS (1)
  - Therapeutic response unexpected [Unknown]
